FAERS Safety Report 8378602-X (Version None)
Quarter: 2012Q2

REPORT INFORMATION
  Report Type: 
  Country: None (occurrence: None)
  Receive Date: 20120522
  Receipt Date: 20120330
  Transmission Date: 20120825
  Serious: No
  Sender: FDA-Public Use
  Company Number: US-ASTRAZENECA-2011SE18298

PATIENT
  Age: 72 Year
  Sex: Female

DRUGS (4)
  1. PRILOSEC [Suspect]
     Route: 048
  2. PRILOSEC OTC [Suspect]
     Route: 048
  3. SEROQUEL [Suspect]
     Indication: SLEEP DISORDER
     Route: 048
  4. SEROQUEL [Suspect]
     Route: 048

REACTIONS (5)
  - CHEST PAIN [None]
  - CONTUSION [None]
  - ACCIDENT AT HOME [None]
  - INITIAL INSOMNIA [None]
  - DRUG INEFFECTIVE [None]
